FAERS Safety Report 12394757 (Version 1)
Quarter: 2016Q2

REPORT INFORMATION
  Report Type: Spontaneous
  Country: US (occurrence: US)
  Receive Date: 20160523
  Receipt Date: 20160523
  Transmission Date: 20160815
  Serious: No
  Sender: FDA-Public Use
  Company Number: US-NOVOPROD-465539

PATIENT
  Age: 5 Year
  Sex: Female

DRUGS (2)
  1. NORDITROPIN [Suspect]
     Active Substance: SOMATROPIN
     Indication: BODY HEIGHT BELOW NORMAL
     Dosage: UNK
     Route: 058
     Dates: start: 201506
  2. NORDITROPIN [Suspect]
     Active Substance: SOMATROPIN
     Dosage: 0.7 MG, QD
     Route: 058

REACTIONS (2)
  - Fatigue [Not Recovered/Not Resolved]
  - Somnolence [Not Recovered/Not Resolved]
